FAERS Safety Report 9203978 (Version 2)
Quarter: 2013Q2

REPORT INFORMATION
  Report Type: Spontaneous
  Country: US (occurrence: None)
  Receive Date: 20120709
  Receipt Date: 20121107
  Transmission Date: 20140414
  Serious: Yes (Other)
  Sender: FDA-Public Use
  Company Number: 2012HGS-003425

PATIENT
  Age: 45 Year
  Sex: Female
  Weight: 146.97 kg

DRUGS (9)
  1. BENLYSTA [Suspect]
     Indication: SYSTEMIC LUPUS ERYTHEMATOSUS
     Dosage: 1 IN 14 D
     Route: 041
     Dates: start: 20120220
  2. HYDROXYCHLOROQUINE (HYDROXYCHLOROQUINE SULFATE) (HYDROXYCHLOROQUINE SULFATE) [Concomitant]
  3. LYRICA (PREGABALIN) (PREGABALIN) [Concomitant]
  4. TRAMADOL (TRAMADOL) (TRAMADOL) [Concomitant]
  5. PREDNISONE (PREDNISONE) (PREDNISONE) [Concomitant]
  6. XANAX (ALPRAZOLAM (ALPRAZOLAM) [Concomitant]
  7. FUROSEMIDE (FUROSEMIDE SODIUM) (FUROSEMIDE SODIUM) [Concomitant]
  8. VIIBRYD (VILAZODONE HYDROCHLORIDE) (VILAZODONE HYDROCHLORIDE) [Concomitant]
  9. HYDROCODONE (HYDROCODONE) (HYDROCODONE) [Concomitant]

REACTIONS (3)
  - Headache [None]
  - Nausea [None]
  - Pain in extremity [None]
